FAERS Safety Report 12412488 (Version 2)
Quarter: 2016Q3

REPORT INFORMATION
  Report Type: Spontaneous
  Country: US (occurrence: US)
  Receive Date: 20160527
  Receipt Date: 20160701
  Transmission Date: 20161109
  Serious: No
  Sender: FDA-Public Use
  Company Number: US-ELI_LILLY_AND_COMPANY-US201605003830

PATIENT
  Sex: Female
  Weight: 110 kg

DRUGS (15)
  1. ASPIRIN                            /00002701/ [Concomitant]
     Active Substance: ASPIRIN
  2. TRULICITY [Suspect]
     Active Substance: DULAGLUTIDE
     Indication: TYPE 2 DIABETES MELLITUS
     Dosage: UNK, WEEKLY (1/W)
     Route: 058
     Dates: start: 201509
  3. METFORMIN [Concomitant]
     Active Substance: METFORMIN HYDROCHLORIDE
  4. ALLEGRA [Concomitant]
     Active Substance: FEXOFENADINE HYDROCHLORIDE
  5. CINNAMON                           /01647501/ [Concomitant]
     Active Substance: CINNAMON
  6. DILACOR XR [Concomitant]
     Active Substance: DILTIAZEM HYDROCHLORIDE
  7. FARXIGA [Concomitant]
     Active Substance: DAPAGLIFLOZIN PROPANEDIOL
  8. HUMALOG [Concomitant]
     Active Substance: INSULIN LISPRO
  9. BIOTIN [Concomitant]
     Active Substance: BIOTIN
  10. MULTIVITAMIN                       /07504101/ [Concomitant]
     Active Substance: VITAMINS
  11. LEVOTHYROXINE. [Concomitant]
     Active Substance: LEVOTHYROXINE
  12. LISINOPRIL. [Concomitant]
     Active Substance: LISINOPRIL
  13. VITAMIN E                          /00110501/ [Concomitant]
     Active Substance: TOCOPHEROL
  14. LANTUS [Concomitant]
     Active Substance: INSULIN GLARGINE
  15. LOVAZA [Concomitant]
     Active Substance: OMEGA-3-ACID ETHYL ESTERS

REACTIONS (1)
  - Dermatitis [Not Recovered/Not Resolved]
